FAERS Safety Report 20417128 (Version 1)
Quarter: 2022Q1

REPORT INFORMATION
  Report Type: Report from Study
  Country: US (occurrence: None)
  Receive Date: 20220202
  Receipt Date: 20220202
  Transmission Date: 20220423
  Serious: Yes (Hospitalization)
  Sender: FDA-Public Use
  Company Number: US-Eisai Medical Research-EC-2021-106067

PATIENT
  Age: 70 Year
  Sex: Female
  Weight: 55.8 kg

DRUGS (8)
  1. LENVIMA [Suspect]
     Active Substance: LENVATINIB
     Indication: Product used for unknown indication
     Route: 048
     Dates: end: 20220114
  2. DECADRON [Concomitant]
     Active Substance: DEXAMETHASONE
  3. GABAPENTIN [Concomitant]
     Active Substance: GABAPENTIN
  4. NORCO [Concomitant]
     Active Substance: ACETAMINOPHEN\HYDROCODONE BITARTRATE
  5. SENNA [Concomitant]
     Active Substance: SENNA LEAF\SENNOSIDES\SENNOSIDES A AND B
  6. TYLENOL [Concomitant]
     Active Substance: ACETAMINOPHEN
  7. FENTANYL [Concomitant]
     Active Substance: FENTANYL
  8. MEGACE [Concomitant]
     Active Substance: MEGESTROL ACETATE

REACTIONS (4)
  - Decreased appetite [Recovering/Resolving]
  - Fatigue [Recovering/Resolving]
  - Platelet count decreased [Recovering/Resolving]
  - Coronavirus infection [Unknown]

NARRATIVE: CASE EVENT DATE: 20211228
